FAERS Safety Report 5648409-2 (Version None)
Quarter: 2008Q1

REPORT INFORMATION
  Report Type: 
  Country: None (occurrence: None)
  Receive Date: 20080131
  Receipt Date: 20071026
  Transmission Date: 20080703
  Serious: No
  Sender: FDA-Public Use
  Company Number: 2005PV005571

PATIENT
  Age: 54 Year
  Sex: Female
  Weight: 83.9 kg

DRUGS (11)
  1. EXENATIDE (EXENATIDE)PEN, DISPOSABLE [Suspect]
     Indication: INSULIN-REQUIRING TYPE 2 DIABETES MELLITUS
     Dosage: 5, 10 UG, 2/D, SUBCUTANEOUS
     Route: 058
     Dates: start: 20060101, end: 20060101
  2. EXENATIDE (EXENATIDE)PEN, DISPOSABLE [Suspect]
     Indication: INSULIN-REQUIRING TYPE 2 DIABETES MELLITUS
     Dosage: 5, 10 UG, 2/D, SUBCUTANEOUS
     Route: 058
     Dates: end: 20060101
  3. EXENATIDE (EXENATIDE)PEN, DISPOSABLE [Suspect]
     Indication: INSULIN-REQUIRING TYPE 2 DIABETES MELLITUS
     Dosage: 5, 10 UG, 2/D, SUBCUTANEOUS
     Route: 058
     Dates: start: 20051101
  4. EXENATIDE PEN, DISPOSABLE DEVICE (EXENATIDE PEN) [Concomitant]
  5. VITAMIN [Concomitant]
  6. COD LIVER OIL [Concomitant]
  7. POTASSIUM CHLORIDE [Concomitant]
  8. GLUCOVANCE [Concomitant]
  9. AVNDIA [Concomitant]
  10. RANITIDE [Concomitant]
  11. LANTUS [Concomitant]

REACTIONS (9)
  - DRUG EFFECT DECREASED [None]
  - EARLY SATIETY [None]
  - ERUCTATION [None]
  - HEADACHE [None]
  - NAUSEA [None]
  - NECK PAIN [None]
  - SKIN PAPILLOMA [None]
  - STRESS [None]
  - THERAPEUTIC RESPONSE UNEXPECTED [None]
